FAERS Safety Report 14553636 (Version 1)
Quarter: 2018Q1

REPORT INFORMATION
  Report Type: Spontaneous
  Country: US (occurrence: US)
  Receive Date: 20180220
  Receipt Date: 20180220
  Transmission Date: 20180509
  Serious: No
  Sender: FDA-Public Use
  Company Number: US-BIOGEN-2011BI030306

PATIENT
  Sex: Female

DRUGS (2)
  1. AVONEX [Suspect]
     Active Substance: INTERFERON BETA-1A
     Indication: MULTIPLE SCLEROSIS
     Route: 030
     Dates: start: 20100314
  2. AVONEX [Suspect]
     Active Substance: INTERFERON BETA-1A
     Route: 030

REACTIONS (2)
  - Memory impairment [Not Recovered/Not Resolved]
  - Influenza like illness [Recovered/Resolved]

NARRATIVE: CASE EVENT DATE: 2010
